FAERS Safety Report 6182865-9 (Version None)
Quarter: 2009Q2

REPORT INFORMATION
  Report Type: 
  Country: None (occurrence: None)
  Receive Date: 20090505
  Receipt Date: 20090424
  Transmission Date: 20091009
  Serious: Yes (Hospitalization)
  Sender: FDA-Public Use
  Company Number: GXKR2009GB05070

PATIENT
  Age: 60 Year
  Sex: Male
  Weight: 76.2 kg

DRUGS (2)
  1. TRAMADOL HCL [Suspect]
     Indication: BACK PAIN
     Dosage: 50 MG, TID, ORAL
     Route: 048
  2. LYRICA [Suspect]
     Indication: SCIATICA
     Dosage: 25 MG, QD, ORAL
     Route: 048
     Dates: start: 20080726, end: 20080726

REACTIONS (8)
  - CHEST DISCOMFORT [None]
  - DIZZINESS [None]
  - HYPERHIDROSIS [None]
  - MALAISE [None]
  - PAIN [None]
  - PRESYNCOPE [None]
  - TACHYCARDIA [None]
  - TREMOR [None]
